FAERS Safety Report 11125867 (Version 3)
Quarter: 2016Q2

REPORT INFORMATION
  Report Type: Spontaneous
  Country: JP (occurrence: JP)
  Receive Date: 20150520
  Receipt Date: 20160411
  Transmission Date: 20160815
  Serious: Yes (Hospitalization, Other)
  Sender: FDA-Public Use
  Company Number: JP-GLAXOSMITHKLINE-JP2015JPN066793

PATIENT
  Age: 48 Year
  Sex: Female
  Weight: 55 kg

DRUGS (15)
  1. PREDONINE [Concomitant]
     Active Substance: PREDNISOLONE\PREDNISOLONE ACETATE\PREDNISOLONE SODIUM SUCCINATE
     Dosage: 8 MG, UNK
  2. PREDONINE [Concomitant]
     Active Substance: PREDNISOLONE\PREDNISOLONE ACETATE\PREDNISOLONE SODIUM SUCCINATE
     Dosage: 8 MG, UNK
  3. PREDONINE [Concomitant]
     Active Substance: PREDNISOLONE\PREDNISOLONE ACETATE\PREDNISOLONE SODIUM SUCCINATE
     Dosage: 8 MG, UNK
  4. PREDONINE [Concomitant]
     Active Substance: PREDNISOLONE\PREDNISOLONE ACETATE\PREDNISOLONE SODIUM SUCCINATE
     Dosage: 8 MG, UNK
  5. PENTAMIDINE ISETIONATE [Concomitant]
     Active Substance: PENTAMIDINE ISETHIONATE
     Indication: ANTIFUNGAL PROPHYLAXIS
     Dosage: 300 MG, UNK
  6. GASTER [Concomitant]
     Active Substance: FAMOTIDINE
  7. SAMITREL [Suspect]
     Active Substance: ATOVAQUONE
     Indication: ANTIFUNGAL PROPHYLAXIS
  8. PREDONINE [Concomitant]
     Active Substance: PREDNISOLONE\PREDNISOLONE ACETATE\PREDNISOLONE SODIUM SUCCINATE
     Dosage: 70 MG, UNK
     Route: 042
  9. PREDONINE [Concomitant]
     Active Substance: PREDNISOLONE\PREDNISOLONE ACETATE\PREDNISOLONE SODIUM SUCCINATE
     Dosage: 70 MG, UNK
     Route: 042
  10. AMLODIPINE [Concomitant]
     Active Substance: AMLODIPINE BESYLATE
  11. SAMITREL [Suspect]
     Active Substance: ATOVAQUONE
     Indication: PNEUMOCYSTIS JIROVECII PNEUMONIA
     Dosage: UNK
     Route: 048
     Dates: start: 20140528, end: 20140624
  12. PREDONINE [Concomitant]
     Active Substance: PREDNISOLONE\PREDNISOLONE ACETATE\PREDNISOLONE SODIUM SUCCINATE
     Dosage: 8 MG, UNK
  13. SLOW-K [Concomitant]
     Active Substance: POTASSIUM CHLORIDE
  14. PREDONINE [Concomitant]
     Active Substance: PREDNISOLONE\PREDNISOLONE ACETATE\PREDNISOLONE SODIUM SUCCINATE
     Dosage: 8 MG, UNK
  15. PREDONINE [Concomitant]
     Active Substance: PREDNISOLONE\PREDNISOLONE ACETATE\PREDNISOLONE SODIUM SUCCINATE
     Dosage: 8 MG, UNK

REACTIONS (17)
  - Drug reaction with eosinophilia and systemic symptoms [Unknown]
  - Pyrexia [Unknown]
  - Dermatitis exfoliative [Unknown]
  - Conjunctival hyperaemia [Unknown]
  - Hepatic enzyme increased [Recovering/Resolving]
  - Lip erosion [Unknown]
  - Oral mucosa erosion [Unknown]
  - Skin erosion [Unknown]
  - Glossodynia [Unknown]
  - Erythema [Recovered/Resolved]
  - Cytomegalovirus infection [Unknown]
  - Oral pain [Unknown]
  - Lip pain [Unknown]
  - Rash [Recovering/Resolving]
  - Hepatic function abnormal [Recovered/Resolved]
  - Oropharyngeal pain [Unknown]
  - Nasal ulcer [Unknown]

NARRATIVE: CASE EVENT DATE: 201406
